FAERS Safety Report 8582356-1 (Version None)
Quarter: 2012Q3

REPORT INFORMATION
  Report Type: 
  Country: None (occurrence: None)
  Receive Date: 20120809
  Receipt Date: 20120731
  Transmission Date: 20120928
  Serious: Yes (Other)
  Sender: FDA-Public Use
  Company Number: US-ASTRAZENECA-2012SE54245

PATIENT
  Age: 82 Year
  Sex: Female

DRUGS (8)
  1. TYLENOL [Suspect]
     Route: 065
  2. TIKOSYN [Suspect]
     Route: 048
  3. METOPROLOL TARTRATE [Suspect]
     Route: 048
  4. ASPIRIN [Suspect]
     Route: 048
  5. LOSARTAN POTASSIUM [Suspect]
     Route: 065
  6. ZESTRIL [Suspect]
     Route: 048
  7. DIGOXIN [Suspect]
     Route: 065
  8. SPIRONOLACTONE [Suspect]
     Route: 065

REACTIONS (12)
  - STRESS [None]
  - FALL [None]
  - BLINDNESS UNILATERAL [None]
  - CEREBRAL HAEMORRHAGE [None]
  - DRUG HYPERSENSITIVITY [None]
  - MALAISE [None]
  - FATIGUE [None]
  - DIZZINESS [None]
  - CATARACT [None]
  - GAIT DISTURBANCE [None]
  - FACIAL BONES FRACTURE [None]
  - HEART RATE INCREASED [None]
